FAERS Safety Report 9473367 (Version 3)
Quarter: 2014Q3

REPORT INFORMATION
  Report Type: Spontaneous
  Country: US (occurrence: US)
  Receive Date: 20130823
  Receipt Date: 20140808
  Transmission Date: 20150326
  Serious: Yes (Other)
  Sender: FDA-Public Use
  Company Number: US-BRISTOL-MYERS SQUIBB COMPANY-18924589

PATIENT
  Age: 57 Year
  Sex: Male

DRUGS (1)
  1. SPRYCEL [Suspect]
     Active Substance: DASATINIB
     Indication: CHRONIC MYELOID LEUKAEMIA
     Dosage: 8MAY-17MAY13:?08MAY13 100MG?10MAY13 80MG
     Route: 048
     Dates: start: 20130508

REACTIONS (3)
  - Pancytopenia [Recovered/Resolved]
  - Malignant neoplasm progression [Unknown]
  - Rash [Unknown]

NARRATIVE: CASE EVENT DATE: 20130509
